FAERS Safety Report 15652003 (Version 1)
Quarter: 2018Q4

REPORT INFORMATION
  Report Type: Other
  Country: CN (occurrence: CN)
  Receive Date: 20181123
  Receipt Date: 20181123
  Transmission Date: 20190205
  Serious: Yes (Hospitalization, Other)
  Sender: FDA-Public Use
  Company Number: CN-ACTELION-A-CH2018-181949

PATIENT

DRUGS (3)
  1. METFORMIN [Concomitant]
     Active Substance: METFORMIN HYDROCHLORIDE
     Dosage: 500 MG, BID
     Route: 048
  2. BOSENTAN. [Suspect]
     Active Substance: BOSENTAN
     Indication: PULMONARY ARTERIAL HYPERTENSION
     Dosage: 62.5 MG, BID
     Route: 048
  3. BOSENTAN. [Suspect]
     Active Substance: BOSENTAN
     Dosage: 125 MG, BID
     Route: 048

REACTIONS (15)
  - Flushing [Unknown]
  - Pneumonia [Unknown]
  - Gastrointestinal disorder [Unknown]
  - Drug ineffective [Unknown]
  - Transaminases increased [Unknown]
  - Post procedural infection [Unknown]
  - Arrhythmia [Unknown]
  - Headache [Unknown]
  - Peripheral swelling [Unknown]
  - Pulmonary arterial hypertension [Unknown]
  - Tracheostomy [Unknown]
  - Nervous system disorder [Unknown]
  - Cardiac operation [Unknown]
  - Liver disorder [Unknown]
  - Diarrhoea [Unknown]
